FAERS Safety Report 13956658 (Version 1)
Quarter: 2017Q3

REPORT INFORMATION
  Report Type: Spontaneous
  Country: BR (occurrence: BR)
  Receive Date: 20170911
  Receipt Date: 20170911
  Transmission Date: 20171128
  Serious: Yes (Hospitalization, Disabling, Other)
  Sender: FDA-Public Use
  Company Number: BR-AMGEN-BRASP2017135187

PATIENT
  Age: 56 Year
  Sex: Female
  Weight: 50.8 kg

DRUGS (4)
  1. RIVOTRIL [Concomitant]
     Active Substance: CLONAZEPAM
     Indication: DEPRESSION
     Dosage: 4 MG, UNK
  2. PURAN [Concomitant]
     Active Substance: LEVOTHYROXINE SODIUM
     Indication: THYROID DISORDER
     Dosage: 50 MG, QD
  3. PROLIA [Suspect]
     Active Substance: DENOSUMAB
     Indication: PRODUCT USED FOR UNKNOWN INDICATION
     Dosage: 60 MG, Q6MO
     Route: 065
  4. LEXAPRO [Concomitant]
     Active Substance: ESCITALOPRAM OXALATE
     Indication: DEPRESSION
     Dosage: 30 MG, QD

REACTIONS (12)
  - Knee operation [Recovered/Resolved]
  - Disability [Unknown]
  - Osteopenia [Not Recovered/Not Resolved]
  - Migraine [Unknown]
  - Walking aid user [Not Recovered/Not Resolved]
  - Thyroid mass [Not Recovered/Not Resolved]
  - Cerebrovascular accident [Unknown]
  - Diverticulitis [Not Recovered/Not Resolved]
  - Presyncope [Recovered/Resolved]
  - Osteoporosis [Not Recovered/Not Resolved]
  - Arthropathy [Not Recovered/Not Resolved]
  - Intentional product misuse [Unknown]

NARRATIVE: CASE EVENT DATE: 2013
